FAERS Safety Report 6727050-4 (Version None)
Quarter: 2010Q2

REPORT INFORMATION
  Report Type: 
  Country: None (occurrence: None)
  Receive Date: 20100517
  Receipt Date: 20100426
  Transmission Date: 20101027
  Serious: Yes (Hospitalization, Other)
  Sender: FDA-Public Use
  Company Number: US-BAYER-200714861NA

PATIENT
  Age: 24 Year
  Sex: Female
  Weight: 73 kg

DRUGS (8)
  1. YASMIN [Suspect]
     Indication: CONTRACEPTION
     Dosage: 1 TAB DAILY
     Route: 048
     Dates: start: 20070701, end: 20071121
  2. ZYRTREC [Concomitant]
     Indication: ASTHMA
     Dates: start: 19970101
  3. POTASSIUM CHLORIDE [Concomitant]
     Dates: start: 20071101
  4. IBUPROFEN [Concomitant]
  5. CLARITHROMYCIN [Concomitant]
  6. CEFUROXIME AXETIL [Concomitant]
  7. AZMACORT [Concomitant]
  8. VENTOLIN [Concomitant]

REACTIONS (6)
  - CHEST PAIN [None]
  - DYSPNOEA [None]
  - HAEMOPTYSIS [None]
  - PLEURAL EFFUSION [None]
  - PULMONARY EMBOLISM [None]
  - PULMONARY INFARCTION [None]
